FAERS Safety Report 4993039-9 (Version None)
Quarter: 2006Q2

REPORT INFORMATION
  Report Type: 
  Country: None (occurrence: None)
  Receive Date: 20060504
  Receipt Date: 20051005
  Transmission Date: 20061013
  Serious: Yes (Death)
  Sender: FDA-Public Use
  Company Number: US-MERCK-0510USA03424

PATIENT
  Age: 54 Year
  Sex: Male
  Weight: 92 kg

DRUGS (3)
  1. VIOXX [Suspect]
     Route: 048
     Dates: start: 20000101, end: 20010101
  2. PROZAC [Concomitant]
     Indication: MOOD ALTERED
     Route: 048
  3. ZOCOR [Concomitant]
     Indication: BLOOD CHOLESTEROL
     Route: 048
     Dates: start: 20000104, end: 20000601

REACTIONS (11)
  - ARTHRALGIA [None]
  - CARDIAC ARREST [None]
  - CERVICOBRACHIAL SYNDROME [None]
  - DIABETES MELLITUS [None]
  - HEADACHE [None]
  - INTERVERTEBRAL DISC DEGENERATION [None]
  - MOOD ALTERED [None]
  - MYOCARDIAL INFARCTION [None]
  - PARAESTHESIA [None]
  - SHOULDER PAIN [None]
  - SUDDEN CARDIAC DEATH [None]
